FAERS Safety Report 4741695-2 (Version None)
Quarter: 2005Q3

REPORT INFORMATION
  Report Type: 
  Country: None (occurrence: None)
  Receive Date: 20050804
  Receipt Date: 20050304
  Transmission Date: 20060218
  Serious: Yes (Other)
  Sender: FDA-Public Use
  Company Number: US-JNJFOC-20050301940

PATIENT
  Age: 2 Year
  Sex: Male

DRUGS (2)
  1. CHILDREN'S MOTRIN [Suspect]
     Indication: DRUG USE FOR UNKNOWN INDICATION
     Dosage: 1/ 2 BOTTLE, ORAL
     Route: 048
     Dates: start: 20050303, end: 20050303
  2. ALBUTEROL INHALER (SALBUTAMOL) [Concomitant]

REACTIONS (2)
  - ACCIDENTAL OVERDOSE [None]
  - OVERDOSE [None]
